FAERS Safety Report 20739089 (Version 1)
Quarter: 2022Q2

REPORT INFORMATION
  Report Type: Spontaneous
  Country: US (occurrence: None)
  Receive Date: 20220421
  Receipt Date: 20220421
  Transmission Date: 20220720
  Serious: Yes (Death)
  Sender: FDA-Public Use
  Company Number: None

PATIENT
  Age: 83 Year
  Sex: Male
  Weight: 103.95 kg

DRUGS (19)
  1. BEBTELOVIMAB [Suspect]
     Active Substance: BEBTELOVIMAB
     Indication: COVID-19
     Dosage: OTHER FREQUENCY : ONE TIME;?
     Route: 042
     Dates: start: 20220414, end: 20220414
  2. CIPROFLOXACIN [Concomitant]
     Active Substance: CIPROFLOXACIN
  3. Vitamin C 500MG [Concomitant]
  4. MELATONIN [Concomitant]
     Active Substance: MELATONIN
  5. Zinc 50MG [Concomitant]
  6. Acidophilus 100mg [Concomitant]
  7. VITAMIN D3 [Concomitant]
     Active Substance: CHOLECALCIFEROL
  8. WELLBUTRIN [Concomitant]
     Active Substance: BUPROPION HYDROCHLORIDE
  9. SERTRALINE [Concomitant]
     Active Substance: SERTRALINE HYDROCHLORIDE
  10. TUMS [Concomitant]
     Active Substance: CALCIUM CARBONATE
  11. ATENOLOL [Concomitant]
     Active Substance: ATENOLOL
  12. AMLODIPINE [Concomitant]
     Active Substance: AMLODIPINE BESYLATE
  13. SOLIFENACIN [Concomitant]
     Active Substance: SOLIFENACIN
  14. ROSUVASTATIN [Concomitant]
     Active Substance: ROSUVASTATIN
  15. RASAGILINE [Concomitant]
     Active Substance: RASAGILINE
  16. METFORMIN [Concomitant]
     Active Substance: METFORMIN HYDROCHLORIDE
  17. FINASTERIDE [Concomitant]
     Active Substance: FINASTERIDE
  18. SINEMET [Concomitant]
     Active Substance: CARBIDOPA\LEVODOPA
  19. BICALUTAMIDE [Concomitant]
     Active Substance: BICALUTAMIDE

REACTIONS (12)
  - Cough [None]
  - Oropharyngeal pain [None]
  - Pulmonary congestion [None]
  - Metabolic encephalopathy [None]
  - Chronic kidney disease [None]
  - Ischaemia [None]
  - Rhabdomyolysis [None]
  - Diabetes mellitus [None]
  - Prostate cancer [None]
  - Dysphagia [None]
  - Urinary tract infection [None]
  - Drug hypersensitivity [None]

NARRATIVE: CASE EVENT DATE: 20220417
